FAERS Safety Report 6932575-2 (Version None)
Quarter: 2010Q3

REPORT INFORMATION
  Report Type: 
  Country: None (occurrence: None)
  Receive Date: 20100817
  Receipt Date: 20100809
  Transmission Date: 20110219
  Serious: Yes (Other)
  Sender: FDA-Public Use
  Company Number: 2010080013

PATIENT
  Age: 62 Year
  Sex: Female
  Weight: 56.6996 kg

DRUGS (8)
  1. ONSOLIS [Suspect]
     Indication: CANCER PAIN
     Dosage: TITRATE UP TO 4-200 MCG
     Dates: start: 20091106, end: 20100226
  2. FOSAMAX [Suspect]
     Indication: BONE NEOPLASM MALIGNANT
     Dosage: 10 MG (70 MG, 1 IN 1 WK) ,ORAL
     Route: 048
  3. OXYCODONE HCL [Concomitant]
  4. FENTANYL-100 [Concomitant]
  5. COUMADIN [Concomitant]
  6. NEURONTIN [Concomitant]
  7. CALCIUM (CALCIUM) [Concomitant]
  8. IRON (IRON) [Concomitant]

REACTIONS (3)
  - MOUTH ULCERATION [None]
  - OSTEONECROSIS OF JAW [None]
  - PROCEDURAL PAIN [None]
